FAERS Safety Report 5134667-X (Version None)
Quarter: 2006Q4

REPORT INFORMATION
  Report Type: 
  Country: None (occurrence: None)
  Receive Date: 20061025
  Receipt Date: 20061016
  Transmission Date: 20070319
  Serious: Yes (Hospitalization)
  Sender: FDA-Public Use
  Company Number: JP-JPN-A200604452

PATIENT
  Age: 70 Year
  Sex: Female

DRUGS (2)
  1. PAXIL [Suspect]
     Indication: DRUG USE FOR UNKNOWN INDICATION
     Dosage: 10MG PER DAY
     Route: 048
     Dates: start: 20061012, end: 20061013
  2. UNKNOWN DRUG [Concomitant]
     Route: 065

REACTIONS (1)
  - DEPRESSED LEVEL OF CONSCIOUSNESS [None]
